FAERS Safety Report 10666323 (Version 1)
Quarter: 2014Q4

REPORT INFORMATION
  Report Type: Spontaneous
  Country: US (occurrence: US)
  Receive Date: 20141220
  Receipt Date: 20141220
  Transmission Date: 20150529
  Serious: No
  Sender: FDA-Public Use
  Company Number: US-009507513-1412USA005612

PATIENT
  Age: 21 Year
  Sex: Female
  Weight: 52.15 kg

DRUGS (1)
  1. NEXPLANON [Suspect]
     Active Substance: ETONOGESTREL
     Indication: CONTRACEPTION
     Dosage: DOSE: UNKNOWN, FREQUENCY: EVERY 3 (NOT SPECIFIED)
     Route: 059
     Dates: start: 20140807

REACTIONS (8)
  - Decreased appetite [Unknown]
  - Breast tenderness [Unknown]
  - Weight decreased [Unknown]
  - Crying [Unknown]
  - Mood swings [Unknown]
  - Emotional disorder [Unknown]
  - Amenorrhoea [Unknown]
  - Abdominal pain upper [Unknown]

NARRATIVE: CASE EVENT DATE: 20140807
